FAERS Safety Report 20016318 (Version 1)
Quarter: 2021Q4

REPORT INFORMATION
  Report Type: Spontaneous
  Country: US (occurrence: None)
  Receive Date: 20211103
  Receipt Date: 20211103
  Transmission Date: 20220303
  Serious: Yes (Hospitalization)
  Sender: FDA-Public Use
  Company Number: None

PATIENT
  Age: 16 Year
  Sex: Male
  Weight: 102.9 kg

DRUGS (8)
  1. ERWINASE [Suspect]
     Active Substance: ASPARAGINASE ERWINIA CHRYSANTHEMI
     Indication: Acute lymphocytic leukaemia
     Dosage: OTHER FREQUENCY : MWF X 6 DOSES;?
     Route: 042
     Dates: start: 20211027, end: 20211102
  2. GABAPENTIN [Concomitant]
     Active Substance: GABAPENTIN
  3. LACTULOSE [Concomitant]
     Active Substance: LACTULOSE
  4. LANSOPRAZOLE [Concomitant]
     Active Substance: LANSOPRAZOLE
  5. MIRTAZAPINE [Concomitant]
     Active Substance: MIRTAZAPINE
  6. ONDANSETRON [Concomitant]
     Active Substance: ONDANSETRON
  7. PHYTONADIONE [Concomitant]
     Active Substance: PHYTONADIONE
  8. SULFAMETHOXAZOLE\TRIMETHOPRIM [Concomitant]
     Active Substance: SULFAMETHOXAZOLE\TRIMETHOPRIM

REACTIONS (2)
  - Encephalopathy [None]
  - Ammonia increased [None]

NARRATIVE: CASE EVENT DATE: 20211102
